FAERS Safety Report 23456073 (Version 3)
Quarter: 2024Q3

REPORT INFORMATION
  Report Type: Report from Study
  Country: DE (occurrence: DE)
  Receive Date: 20240130
  Receipt Date: 20240730
  Transmission Date: 20241017
  Serious: No
  Sender: ROCHE
  Company Number: DE-ROCHE-3498114

PATIENT
  Age: 40 Year
  Sex: Female

DRUGS (3)
  1. OCREVUS [Suspect]
     Active Substance: OCRELIZUMAB
     Indication: Primary progressive multiple sclerosis
     Dosage: LAST INFUSION: 27/12/2021 (2ND INITIAL DOSE).?THE PATIENT RESUMED THERAPY IN EARLY DEC-2022?LAST INF
     Route: 042
     Dates: start: 20211213
  2. PRIMIDONE [Concomitant]
     Active Substance: PRIMIDONE
  3. BACLOFEN [Concomitant]
     Active Substance: BACLOFEN
     Dosage: 35 MG (MORNING) - 30 MG (NOON) - 25 MG (EVENING)

REACTIONS (4)
  - Herpes virus infection [Recovered/Resolved]
  - Limb discomfort [Not Recovered/Not Resolved]
  - Muscle spasticity [Recovering/Resolving]
  - Maternal exposure before pregnancy [Unknown]

NARRATIVE: CASE EVENT DATE: 20230501
